FAERS Safety Report 7434650-5 (Version None)
Quarter: 2011Q2

REPORT INFORMATION
  Report Type: 
  Country: None (occurrence: None)
  Receive Date: 20110425
  Receipt Date: 20110412
  Transmission Date: 20111010
  Serious: Yes (Hospitalization, Other)
  Sender: FDA-Public Use
  Company Number: US-AMGEN-USASP2011019439

PATIENT
  Age: 53 Year
  Sex: Female

DRUGS (1)
  1. ENBREL [Suspect]
     Indication: RHEUMATOID ARTHRITIS
     Dosage: 50 MG, QWK
     Dates: start: 20100630, end: 20110111

REACTIONS (8)
  - EAR INFECTION [None]
  - PLEURISY [None]
  - PNEUMONIA VIRAL [None]
  - SINUSITIS [None]
  - ARTHRALGIA [None]
  - URINARY TRACT INFECTION [None]
  - H1N1 INFLUENZA [None]
  - JOINT STIFFNESS [None]
